FAERS Safety Report 13312908 (Version 2)
Quarter: 2017Q2

REPORT INFORMATION
  Report Type: Report from Study
  Country: DE (occurrence: DE)
  Receive Date: 20170309
  Receipt Date: 20170510
  Transmission Date: 20170830
  Serious: Yes (Other)
  Sender: FDA-Public Use
  Company Number: DE-INCYTE CORPORATION-2017IN000258

PATIENT
  Age: 64 Year
  Sex: Female

DRUGS (6)
  1. JAKAVI [Suspect]
     Active Substance: RUXOLITINIB
     Indication: POLYCYTHAEMIA VERA
     Dosage: 30 MG, BID
     Route: 048
     Dates: start: 20140820, end: 20161201
  2. JAKAVI [Suspect]
     Active Substance: RUXOLITINIB
     Dosage: REDUCED DOSE
     Route: 048
     Dates: start: 20161209
  3. PANTOZOL [Concomitant]
     Active Substance: PANTOPRAZOLE SODIUM
     Indication: HIATUS HERNIA
     Dosage: 40 MG, UNK
     Route: 048
     Dates: start: 2008
  4. JAKAVI [Suspect]
     Active Substance: RUXOLITINIB
     Indication: MYELOFIBROSIS
     Dosage: 30 MG, BID
     Route: 048
     Dates: start: 20120306, end: 20160817
  5. IBUPROFEN. [Concomitant]
     Active Substance: IBUPROFEN
     Indication: HEADACHE
     Dosage: 400 MG, PRN
     Route: 048
     Dates: start: 1992
  6. VITAMIN D [Concomitant]
     Active Substance: CHOLECALCIFEROL
     Indication: VITAMIN D DEFICIENCY
     Dosage: 20.000 OT, QD
     Route: 048
     Dates: start: 20160201

REACTIONS (5)
  - Metastases to lung [Recovered/Resolved]
  - Intraductal proliferative breast lesion [Unknown]
  - Breast cancer metastatic [Unknown]
  - Second primary malignancy [Recovering/Resolving]
  - Invasive ductal breast carcinoma [Unknown]

NARRATIVE: CASE EVENT DATE: 20140516
